FAERS Safety Report 7911645-6 (Version None)
Quarter: 2011Q4

REPORT INFORMATION
  Report Type: 
  Country: None (occurrence: None)
  Receive Date: 20111114
  Receipt Date: 20111114
  Transmission Date: 20120403
  Serious: Yes (Other)
  Sender: FDA-Public Use
  Company Number: None

PATIENT
  Age: 58 Year
  Sex: Male
  Weight: 95.254 kg

DRUGS (1)
  1. CREST PRO HEALTH COMPLETE RINSE [Suspect]
     Indication: BREATH ODOUR
     Dosage: 1 OUNCE
     Route: 048
     Dates: start: 20110801, end: 20111107

REACTIONS (2)
  - TOOTH DISCOLOURATION [None]
  - DYSGEUSIA [None]
